FAERS Safety Report 7411801-X (Version None)
Quarter: 2011Q2

REPORT INFORMATION
  Report Type: 
  Country: None (occurrence: None)
  Receive Date: 20110413
  Receipt Date: 20110125
  Transmission Date: 20111010
  Serious: Yes (Other)
  Sender: FDA-Public Use
  Company Number: US-BRISTOL-MYERS SQUIBB COMPANY-15510688

PATIENT
  Age: 60 Year
  Sex: Male

DRUGS (2)
  1. ERBITUX [Suspect]
     Indication: HEAD AND NECK CANCER
     Dosage: RECEIVED 100CC OF INFUSION
     Dates: start: 20110121
  2. BENADRYL [Concomitant]
     Indication: PREMEDICATION

REACTIONS (4)
  - PYREXIA [None]
  - TREMOR [None]
  - CHILLS [None]
  - CHEST PAIN [None]
